FAERS Safety Report 25576003 (Version 2)
Quarter: 2025Q3

REPORT INFORMATION
  Report Type: Report from Study
  Country: TH (occurrence: TH)
  Receive Date: 20250718
  Receipt Date: 20250807
  Transmission Date: 20251021
  Serious: Yes (Death)
  Sender: ROCHE
  Company Number: TH-ROCHE-10000339669

PATIENT

DRUGS (3)
  1. RITUXIMAB [Suspect]
     Active Substance: RITUXIMAB
     Indication: Acquired haemophilia
     Route: 065
  2. CYCLOPHOSPHAMIDE [Suspect]
     Active Substance: CYCLOPHOSPHAMIDE
     Indication: Acquired haemophilia
     Route: 065
  3. PREDNISOLONE [Suspect]
     Active Substance: PREDNISOLONE
     Indication: Acquired haemophilia
     Route: 065

REACTIONS (7)
  - Infection [Fatal]
  - Soft tissue infection [Fatal]
  - Skin infection [Fatal]
  - Urinary tract infection [Fatal]
  - Sepsis [Fatal]
  - Pneumonia [Fatal]
  - Central nervous system infection [Fatal]
